FAERS Safety Report 15338174 (Version 1)
Quarter: 2018Q3

REPORT INFORMATION
  Report Type: Spontaneous
  Country: US (occurrence: US)
  Receive Date: 20180831
  Receipt Date: 20180831
  Transmission Date: 20181010
  Serious: No
  Sender: FDA-Public Use
  Company Number: US-VERTEX PHARMACEUTICALS-2018-006272

PATIENT
  Sex: Male

DRUGS (5)
  1. PULMOZYME [Concomitant]
     Active Substance: DORNASE ALFA
  2. HYPERSAL [Concomitant]
  3. PANCREAZE                          /00150201/ [Concomitant]
  4. ORKAMBI [Suspect]
     Active Substance: IVACAFTOR\LUMACAFTOR
     Indication: CYSTIC FIBROSIS
     Dosage: 2 DOSAGE FORM (200/125 MG EACH), BID WITH FAT CONTAINING FOOD
     Route: 048
     Dates: start: 201510
  5. CAYSTON [Concomitant]
     Active Substance: AZTREONAM

REACTIONS (1)
  - Chest discomfort [Unknown]
